FAERS Safety Report 7812343-X (Version None)
Quarter: 2011Q4

REPORT INFORMATION
  Report Type: 
  Country: None (occurrence: None)
  Receive Date: 20111013
  Receipt Date: 20111006
  Transmission Date: 20120403
  Serious: Yes (Other)
  Sender: FDA-Public Use
  Company Number: US-GLAXOSMITHKLINE-A0947974A

PATIENT
  Age: 62 Year
  Sex: Female

DRUGS (5)
  1. COUMADIN [Concomitant]
  2. LOVAZA [Suspect]
     Indication: BLOOD TRIGLYCERIDES INCREASED
     Dosage: 1CAP TWICE PER DAY
     Route: 048
     Dates: start: 20080201, end: 20090101
  3. LASIX [Concomitant]
  4. AMARYL [Concomitant]
  5. DIAVAN [Concomitant]

REACTIONS (7)
  - DYSGEUSIA [None]
  - SPINAL FRACTURE [None]
  - APHAGIA [None]
  - OSTEOGENESIS IMPERFECTA [None]
  - WEIGHT DECREASED [None]
  - DECREASED APPETITE [None]
  - ABDOMINAL PAIN UPPER [None]
